FAERS Safety Report 6600072-X (Version None)
Quarter: 2010Q1

REPORT INFORMATION
  Report Type: 
  Country: None (occurrence: None)
  Receive Date: 20100224
  Receipt Date: 20100212
  Transmission Date: 20100710
  Serious: Yes (Other)
  Sender: FDA-Public Use
  Company Number: ES-JNJFOC-20100207638

PATIENT
  Age: 32 Year
  Sex: Male

DRUGS (5)
  1. INFLIXIMAB [Suspect]
     Indication: CROHN'S DISEASE
     Route: 042
  2. INFLIXIMAB [Suspect]
     Dosage: AFTER 6 MONTHS, STOPPED
     Route: 042
  3. PREDNISOLONE [Concomitant]
     Indication: CROHN'S DISEASE
  4. MESALAZINE [Concomitant]
     Indication: CROHN'S DISEASE
  5. METRONIDAZOLE [Concomitant]
     Indication: CROHN'S DISEASE

REACTIONS (1)
  - MYCOBACTERIUM MARINUM INFECTION [None]
